FAERS Safety Report 14950458 (Version 2)
Quarter: 2018Q2

REPORT INFORMATION
  Report Type: Report from Study
  Country: US (occurrence: US)
  Receive Date: 20180530
  Receipt Date: 20180615
  Transmission Date: 20180711
  Serious: Yes (Hospitalization, Other)
  Sender: FDA-Public Use
  Company Number: US-BIOGEN-2018BI00586587

PATIENT
  Age: 44 Year
  Sex: Male

DRUGS (1)
  1. ZINBRYTA [Suspect]
     Active Substance: DACLIZUMAB
     Indication: RELAPSING-REMITTING MULTIPLE SCLEROSIS
     Route: 058
     Dates: end: 201801

REACTIONS (2)
  - Diabetes mellitus [Unknown]
  - Localised infection [Unknown]

NARRATIVE: CASE EVENT DATE: 201805
